FAERS Safety Report 4317694-1 (Version None)
Quarter: 2004Q1

REPORT INFORMATION
  Report Type: 
  Country: None (occurrence: None)
  Receive Date: 20040315
  Receipt Date: 20040305
  Transmission Date: 20041129
  Serious: Yes (Other)
  Sender: FDA-Public Use
  Company Number: US-ROCHE-361127

PATIENT
  Age: 20 Year
  Sex: Female
  Weight: 52.2 kg

DRUGS (4)
  1. ACCUTANE [Suspect]
     Indication: ACNE
     Route: 048
     Dates: start: 20020815, end: 20030215
  2. PAXIL [Concomitant]
     Route: 048
  3. THYROID DRUG NOS [Concomitant]
     Indication: HYPOTHYROIDISM
     Route: 048
  4. BIRTH CONTROL PILLS NOS [Concomitant]
     Route: 048

REACTIONS (6)
  - BIPOLAR DISORDER [None]
  - EPISTAXIS [None]
  - HEADACHE [None]
  - NAIL DISCOLOURATION [None]
  - NAIL DISORDER [None]
  - NAIL DYSTROPHY [None]
